FAERS Safety Report 8442870-6 (Version None)
Quarter: 2012Q2

REPORT INFORMATION
  Report Type: 
  Country: None (occurrence: None)
  Receive Date: 20120323
  Receipt Date: 20110609
  Transmission Date: 20120825
  Serious: Yes (Hospitalization)
  Sender: FDA-Public Use
  Company Number: 163-21880-11061466

PATIENT
  Age: 79 Year
  Sex: Female

DRUGS (12)
  1. REVLIMID [Suspect]
     Indication: MULTIPLE MYELOMA
     Dosage: 10 MG, 1 IN 1 D, PO; 10 MG, DAILY X 21D/28D, PO
     Route: 048
     Dates: start: 20100401
  2. REVLIMID [Suspect]
     Indication: MULTIPLE MYELOMA
     Dosage: 10 MG, 1 IN 1 D, PO; 10 MG, DAILY X 21D/28D, PO
     Route: 048
     Dates: start: 20100301, end: 20100101
  3. CYCLOBENZAPRINE [Concomitant]
  4. ALBUTEROL [Concomitant]
  5. ASPIRIN [Concomitant]
  6. ALLOPURINOL [Concomitant]
  7. APAP/CODEINE (GALENIC /PARACETAMOL/CODEINE/) [Concomitant]
  8. IBUPROFEN [Concomitant]
  9. CIPROFLOXACIN [Concomitant]
  10. MORPHINE [Concomitant]
  11. ZOLPIDEM [Concomitant]
  12. SIMVASTATIN [Concomitant]

REACTIONS (3)
  - INFECTION [None]
  - PANCYTOPENIA [None]
  - DIVERTICULUM [None]
